FAERS Safety Report 6266989-3 (Version None)
Quarter: 2009Q3

REPORT INFORMATION
  Report Type: 
  Country: None (occurrence: None)
  Receive Date: 20090714
  Receipt Date: 20090706
  Transmission Date: 20100115
  Serious: Yes (Hospitalization)
  Sender: FDA-Public Use
  Company Number: PHHO2009US04014

PATIENT
  Sex: Female
  Weight: 57.6 kg

DRUGS (22)
  1. RAD 666 RAD+TAB [Suspect]
     Indication: NEOPLASM MALIGNANT
     Dosage: 5 MG/ M, W, F
     Dates: start: 20080313
  2. BEVACIZUMAB [Suspect]
     Indication: NEOPLASM MALIGNANT
     Dosage: 10 MG/KG
     Dates: start: 20080312
  3. PANITUMUMAB [Concomitant]
     Indication: NEOPLASM MALIGNANT
     Dosage: 4.8 MG/KG PER Q2W
  4. CALCIUM [Concomitant]
     Dosage: 750 MG, QD
  5. POTASSIUM CHLORIDE [Concomitant]
     Dosage: 20 MEQ, QD
  6. SYNTHROID [Concomitant]
     Dosage: 50 UG, QD
  7. DYAZIDE [Concomitant]
  8. AMBIEN [Concomitant]
     Dosage: 10 MG, PRN
  9. PANCREASE [Concomitant]
     Dosage: 2 DF/BEFORE MEAL
  10. NOVOLOG [Concomitant]
  11. ATIVAN [Concomitant]
     Dosage: 0.5 MG, PRN
  12. VICODIN [Concomitant]
     Dosage: UNK DF, PRN
  13. TYLENOL [Concomitant]
     Dosage: 650 MG, PRN
  14. PHENERGAN [Concomitant]
     Dosage: 25 MG, PRN
  15. EFFEXOR [Concomitant]
     Dosage: 75 MG, QD
  16. ZOCOR [Concomitant]
     Dosage: 20 MG, QD
  17. LANTUS [Concomitant]
     Dosage: 20 IU, QD
  18. DOCUSATE [Concomitant]
     Dosage: 2 DF, BID
  19. GRANISETRON HCL [Concomitant]
     Dosage: 1 MG, PRN
  20. INSULIN [Concomitant]
     Indication: DIABETES MELLITUS
  21. METRONIDAZOLE [Concomitant]
  22. PROTONIX [Concomitant]

REACTIONS (30)
  - ABDOMINAL DISTENSION [None]
  - ABDOMINAL PAIN [None]
  - ANAEMIA [None]
  - ANXIETY [None]
  - BACK PAIN [None]
  - BILE DUCT OBSTRUCTION [None]
  - BLOOD ALKALINE PHOSPHATASE INCREASED [None]
  - CHOLANGITIS [None]
  - CHOLELITHIASIS [None]
  - COAGULOPATHY [None]
  - DECREASED APPETITE [None]
  - DEHYDRATION [None]
  - DUODENAL PERFORATION [None]
  - DUODENAL STENOSIS [None]
  - ELECTROLYTE IMBALANCE [None]
  - ENDOSCOPIC RETROGRADE CHOLANGIOPANCREATOGRAPHY [None]
  - FATIGUE [None]
  - HYPERBILIRUBINAEMIA [None]
  - HYPONATRAEMIA [None]
  - IMPAIRED GASTRIC EMPTYING [None]
  - JAUNDICE [None]
  - LIVER ABSCESS [None]
  - MALIGNANT NEOPLASM PROGRESSION [None]
  - METASTASES TO LIVER [None]
  - NAUSEA [None]
  - PARACENTESIS [None]
  - PYREXIA [None]
  - STENT OCCLUSION [None]
  - STENT PLACEMENT [None]
  - VOMITING [None]
